FAERS Safety Report 5533806-6 (Version None)
Quarter: 2007Q4

REPORT INFORMATION
  Report Type: 
  Country: None (occurrence: None)
  Receive Date: 20071120
  Receipt Date: 20070810
  Transmission Date: 20080405
  Serious: Yes (Other)
  Sender: FDA-Public Use
  Company Number: WAES 0708USA02092

PATIENT
  Age: 79 Year
  Sex: Male
  Weight: 71.2147 kg

DRUGS (4)
  1. JANUVIA [Suspect]
     Indication: TYPE 2 DIABETES MELLITUS
     Dosage: 100 MG/DAILY/PO
     Route: 048
     Dates: start: 20070724, end: 20070809
  2. GLUCOPHAGE [Concomitant]
  3. LIPITOR [Concomitant]
  4. AMILORIDE HYDROCHLORIDE [Concomitant]

REACTIONS (1)
  - RASH [None]
